FAERS Safety Report 4691787-1 (Version None)
Quarter: 2005Q2

REPORT INFORMATION
  Report Type: 
  Country: None (occurrence: None)
  Receive Date: 20050615
  Receipt Date: 20050615
  Transmission Date: 20051028
  Serious: Yes (Hospitalization)
  Sender: FDA-Public Use
  Company Number: None

PATIENT
  Age: 47 Year
  Sex: Male
  Weight: 53.0709 kg

DRUGS (11)
  1. AVASTIN [Suspect]
     Indication: GASTROOESOPHAGEAL CANCER
     Dosage: 5MG/KG IV DAYS 1,15
     Route: 042
     Dates: start: 20050224, end: 20050224
  2. TAXOTERE [Suspect]
     Indication: GASTROOESOPHAGEAL CANCER
     Dosage: 35 MG/M2 IV DAYS 1,8,15
     Route: 042
     Dates: start: 20050224, end: 20050303
  3. DARVOCET [Concomitant]
  4. DECADRON [Concomitant]
  5. KLONOPIN [Concomitant]
  6. ATIVAN [Concomitant]
  7. COMPAZINE [Concomitant]
  8. FOLIC ACID [Concomitant]
  9. PROTONIX [Concomitant]
  10. THIAMINE [Concomitant]
  11. MEGACE [Concomitant]

REACTIONS (11)
  - DIZZINESS [None]
  - GASTRIC ULCER [None]
  - GASTROINTESTINAL HAEMORRHAGE [None]
  - HAEMATEMESIS [None]
  - HYPOTENSION [None]
  - LOSS OF CONSCIOUSNESS [None]
  - MASS [None]
  - MELAENA [None]
  - NAUSEA [None]
  - SYNCOPE [None]
  - TACHYCARDIA [None]
